FAERS Safety Report 12057646 (Version 1)
Quarter: 2016Q1

REPORT INFORMATION
  Report Type: Spontaneous
  Country: US (occurrence: US)
  Receive Date: 20160209
  Receipt Date: 20160209
  Transmission Date: 20160526
  Serious: Yes (Hospitalization)
  Sender: FDA-Public Use
  Company Number: US-BAUSCH-BL-2016-002874

PATIENT
  Age: 62 Year
  Sex: Male

DRUGS (2)
  1. XENAZINE [Suspect]
     Active Substance: TETRABENAZINE
     Indication: DYSKINESIA
  2. XENAZINE [Suspect]
     Active Substance: TETRABENAZINE
     Indication: BLEPHAROSPASM
     Dosage: 25 MG 1 TAB IN MORNING AND 1/2 TABLET IN EVENING
     Route: 048
     Dates: start: 20140416

REACTIONS (3)
  - Off label use [Unknown]
  - Pancreatitis [Unknown]
  - Gallbladder disorder [Unknown]

NARRATIVE: CASE EVENT DATE: 20140416
